FAERS Safety Report 5765584-X (Version None)
Quarter: 2008Q2

REPORT INFORMATION
  Report Type: 
  Country: None (occurrence: None)
  Receive Date: 20080606
  Receipt Date: 20080606
  Transmission Date: 20081010
  Serious: No
  Sender: FDA-Public Use
  Company Number: None

PATIENT
  Sex: Male
  Weight: 76.7 kg

DRUGS (1)
  1. TRETINOIN [Suspect]
     Dosage: 5040 MG
     Dates: start: 20050119, end: 20050518

REACTIONS (1)
  - EJECTION FRACTION DECREASED [None]
